FAERS Safety Report 7206565-9 (Version None)
Quarter: 2011Q1

REPORT INFORMATION
  Report Type: 
  Country: None (occurrence: None)
  Receive Date: 20110103
  Receipt Date: 20101223
  Transmission Date: 20110831
  Serious: Yes (Other)
  Sender: FDA-Public Use
  Company Number: PHHY2010DE87757

PATIENT
  Age: 14 Year
  Sex: Female

DRUGS (1)
  1. INTERFERON BETA-1B [Suspect]
     Indication: MULTIPLE SCLEROSIS
     Dosage: UNK
     Route: 030

REACTIONS (5)
  - CHEST PAIN [None]
  - MYALGIA [None]
  - HEADACHE [None]
  - PERICARDIAL EFFUSION [None]
  - INFLUENZA LIKE ILLNESS [None]
